FAERS Safety Report 9299457 (Version 3)
Quarter: 2014Q1

REPORT INFORMATION
  Report Type: Spontaneous
  Country: AR (occurrence: AR)
  Receive Date: 20130521
  Receipt Date: 20140203
  Transmission Date: 20141002
  Serious: Yes (Other)
  Sender: FDA-Public Use
  Company Number: AR-AMGEN-ARGSP2013035296

PATIENT
  Age: 63 Year
  Sex: Female

DRUGS (8)
  1. ENBREL [Suspect]
     Indication: RHEUMATOID ARTHRITIS
     Dosage: 50 MG, WEEKLY
     Route: 065
     Dates: start: 20110103
  2. IBUPROFEN [Concomitant]
     Indication: PAIN
     Dosage: 400 MG, 2X/DAY
  3. DELTISONA B                        /00049601/ [Concomitant]
     Dosage: 8 MG, 1/2 PER DAY
  4. METHOTREXATE [Concomitant]
     Dosage: 10 MG, WEEKLY
  5. OMEPRAZOLE [Concomitant]
     Dosage: UNK
  6. FOLIC ACID [Concomitant]
     Dosage: UNK
  7. PREGABALIN [Concomitant]
     Dosage: 75 MG, AS NEEDED
  8. CARVEDILOL [Concomitant]
     Indication: HYPERTENSION
     Dosage: 12.5 MG, 1X/DAY

REACTIONS (2)
  - Thrombosis [Recovering/Resolving]
  - Pain [Recovering/Resolving]
